FAERS Safety Report 6632112-6 (Version None)
Quarter: 2010Q1

REPORT INFORMATION
  Report Type: 
  Country: None (occurrence: None)
  Receive Date: 20100312
  Receipt Date: 20100218
  Transmission Date: 20100710
  Serious: Yes (Other)
  Sender: FDA-Public Use
  Company Number: US-ROCHE-690113

PATIENT
  Age: 83 Year
  Sex: Male
  Weight: 67 kg

DRUGS (1)
  1. AVASTIN [Suspect]
     Dosage: FREQUENCY EVERY 1-2 MONTHS.  LAST DOSE PRIOR TO SAE JANUARY 2010.
     Route: 031
     Dates: start: 20060901

REACTIONS (1)
  - LYMPHOMA [None]
